FAERS Safety Report 5000994-X (Version None)
Quarter: 2006Q2

REPORT INFORMATION
  Report Type: 
  Country: None (occurrence: None)
  Receive Date: 20060512
  Receipt Date: 20060504
  Transmission Date: 20061013
  Serious: Yes (Other)
  Sender: FDA-Public Use
  Company Number: 2006UW08667

PATIENT
  Age: 45 Year
  Sex: Female
  Weight: 63.5 kg

DRUGS (3)
  1. SEROQUEL [Suspect]
     Indication: SLEEP DISORDER
     Route: 048
     Dates: start: 20060428, end: 20060430
  2. ADVAIR DISKUS 100/50 [Concomitant]
  3. NASACORT [Concomitant]

REACTIONS (4)
  - COORDINATION ABNORMAL [None]
  - COUGH [None]
  - DYSARTHRIA [None]
  - FALL [None]
